FAERS Safety Report 25715343 (Version 1)
Quarter: 2025Q3

REPORT INFORMATION
  Report Type: Spontaneous
  Country: EU (occurrence: EU)
  Receive Date: 20250822
  Receipt Date: 20250822
  Transmission Date: 20251020
  Serious: Yes (Other)
  Sender: JOHNSON AND JOHNSON
  Company Number: None

PATIENT
  Age: 50 Year
  Sex: Female

DRUGS (5)
  1. SPRAVATO [Suspect]
     Active Substance: ESKETAMINE
     Indication: Depression
     Route: 045
     Dates: start: 20250507, end: 20250807
  2. Paroxetin 20 mg [Concomitant]
     Indication: Depression
  3. MOUNJARO [Concomitant]
     Active Substance: TIRZEPATIDE
     Indication: Hypertension
  4. MOUNJARO [Concomitant]
     Active Substance: TIRZEPATIDE
     Indication: Overweight
  5. PREGABALIN [Concomitant]
     Active Substance: PREGABALIN
     Indication: Depression

REACTIONS (7)
  - Syncope [Recovered/Resolved]
  - Hypotension [Recovered/Resolved]
  - Nausea [Recovered/Resolved]
  - Vertigo [Recovered/Resolved]
  - Dissociation [Recovered/Resolved]
  - Anxiety [Recovered/Resolved]
  - Fall [Recovered/Resolved]

NARRATIVE: CASE EVENT DATE: 20250807
